FAERS Safety Report 8828795 (Version 3)
Quarter: 2014Q1

REPORT INFORMATION
  Report Type: Spontaneous
  Country: US (occurrence: US)
  Receive Date: 20121009
  Receipt Date: 20140318
  Transmission Date: 20141002
  Serious: Yes (Hospitalization, Other)
  Sender: FDA-Public Use
  Company Number: US-BAYER-2012-103813

PATIENT
  Age: 29 Year
  Sex: Female
  Weight: 102.4 kg

DRUGS (6)
  1. YAZ [Suspect]
     Indication: PREMENSTRUAL SYNDROME
     Dosage: UNK
     Dates: start: 20090601, end: 201102
  2. DILAUDID [Concomitant]
  3. ZOFRAN [Concomitant]
  4. DOXYCYCLINE [Concomitant]
  5. PEPCID [FAMOTIDINE] [Concomitant]
     Dosage: 20 MG TABLET [AS WRITTEN]
  6. HYDROCODONE W/ACETAMINOPHEN [Concomitant]
     Dosage: 7.5/500 [AS WRITTEN]

REACTIONS (9)
  - Cholecystectomy [None]
  - Cholecystitis chronic [None]
  - Pain [None]
  - Injury [None]
  - General physical health deterioration [None]
  - Emotional distress [None]
  - Anxiety [None]
  - Anhedonia [None]
  - Pain [None]
